FAERS Safety Report 9611024 (Version 3)
Quarter: 2013Q4

REPORT INFORMATION
  Report Type: Spontaneous
  Country: FR (occurrence: FR)
  Receive Date: 20131009
  Receipt Date: 20131029
  Transmission Date: 20140711
  Serious: Yes (Hospitalization)
  Sender: FDA-Public Use
  Company Number: FR-GLAXOSMITHKLINE-B0926721A

PATIENT
  Age: 77 Year
  Sex: Male
  Weight: 88 kg

DRUGS (4)
  1. ARIXTRA [Suspect]
     Indication: THROMBOPHLEBITIS
     Dosage: 7.5MG PER DAY
     Route: 058
     Dates: start: 201308, end: 20130913
  2. BISOPROLOL [Concomitant]
     Dosage: .5TAB TWICE PER DAY
     Route: 048
  3. OMEPRAZOLE [Concomitant]
     Dosage: 20MG PER DAY
  4. BROMAZEPAM [Concomitant]
     Dosage: .5TAB AT NIGHT
     Route: 048

REACTIONS (5)
  - Anaemia [Recovering/Resolving]
  - Post procedural haematoma [Recovered/Resolved with Sequelae]
  - Post procedural complication [Recovered/Resolved with Sequelae]
  - Pain [Recovered/Resolved]
  - Paralysis [Unknown]
